FAERS Safety Report 8833738 (Version 1)
Quarter: 2012Q4

REPORT INFORMATION
  Report Type: 
  Country: US (occurrence: US)
  Receive Date: 20121010
  Receipt Date: 20121010
  Transmission Date: 20130627
  Serious: Yes (Other)
  Sender: FDA-Public Use
  Company Number: US-PFIZER INC-2012249124

PATIENT
  Age: 75 Year
  Sex: Female

DRUGS (5)
  1. ARGATROBAN [Suspect]
     Indication: HEPARIN-INDUCED THROMBOCYTOPENIA
     Dosage: 0.7 ml/ hr, Unk
     Route: 042
     Dates: start: 20121003, end: 20121005
  2. ARGATROBAN [Suspect]
     Indication: PULMONARY EMBOLISM
  3. LEVOPHED [Concomitant]
     Indication: PULMONARY EMBOLISM
     Dosage: Unk
  4. NOREPINEPHRINE [Concomitant]
     Dosage: UNK
  5. COUMADINE [Concomitant]
     Dosage: UNK

REACTIONS (3)
  - Activated partial thromboplastin time prolonged [Not Recovered/Not Resolved]
  - Renal failure [Not Recovered/Not Resolved]
  - Hepatic enzyme increased [Unknown]
